FAERS Safety Report 6656778-X (Version None)
Quarter: 2010Q1

REPORT INFORMATION
  Report Type: 
  Country: None (occurrence: None)
  Receive Date: 20100329
  Receipt Date: 20091024
  Transmission Date: 20100710
  Serious: Yes (Other)
  Sender: FDA-Public Use
  Company Number: GXKR2009BE11384

PATIENT
  Age: 45 Year
  Sex: Female

DRUGS (3)
  1. VENLAFAXINE SANDOZ (NGX) [Interacting]
     Dosage: 150 MG DAILY
     Route: 048
     Dates: start: 20090701, end: 20090801
  2. LAMISIL [Suspect]
     Dosage: 250 MG DAILY
     Route: 048
     Dates: start: 20090701, end: 20090801
  3. YASMIN [Concomitant]
     Indication: ORAL CONTRACEPTION

REACTIONS (1)
  - DIPLOPIA [None]
